FAERS Safety Report 9202069 (Version 1)
Quarter: 2013Q1

REPORT INFORMATION
  Report Type: Spontaneous
  Country: CA (occurrence: None)
  Receive Date: 20130325
  Receipt Date: 20130325
  Transmission Date: 20140127
  Serious: Yes (Other)
  Sender: FDA-Public Use
  Company Number: 2013035053

PATIENT
  Age: 75 Year
  Sex: Male

DRUGS (2)
  1. ALBUREX [Suspect]
  2. BENADRYL /00000402/(DIPHENHYDRAMINE HYDROCHLORIDE) [Concomitant]

REACTIONS (6)
  - Tremor [None]
  - Erythema [None]
  - Ocular hyperaemia [None]
  - Feeling cold [None]
  - No therapeutic response [None]
  - Fear [None]
